FAERS Safety Report 7432696-4 (Version None)
Quarter: 2011Q2

REPORT INFORMATION
  Report Type: 
  Country: None (occurrence: None)
  Receive Date: 20110422
  Receipt Date: 20110418
  Transmission Date: 20111010
  Serious: Yes (Death)
  Sender: FDA-Public Use
  Company Number: US-ASTRAZENECA-2011SE00812

PATIENT
  Age: 79 Year
  Sex: Female

DRUGS (5)
  1. WARFARIN [Concomitant]
  2. SPIRIVA [Concomitant]
  3. TOPROL-XL [Suspect]
     Indication: ATRIAL FIBRILLATION
     Route: 048
  4. DIGOXIN [Concomitant]
  5. FUROSEMIDE [Concomitant]

REACTIONS (2)
  - ATRIAL FIBRILLATION [None]
  - LUNG DISORDER [None]
